FAERS Safety Report 11844310 (Version 1)
Quarter: 2015Q4

REPORT INFORMATION
  Report Type: Spontaneous
  Country: DK (occurrence: DK)
  Receive Date: 20151217
  Receipt Date: 20151217
  Transmission Date: 20160305
  Serious: Yes (Death, Hospitalization)
  Sender: FDA-Public Use
  Company Number: DK-WATSON-2015-27656

PATIENT
  Age: 21 Year
  Sex: Male

DRUGS (4)
  1. NOZINAN                            /00038601/ [Suspect]
     Active Substance: LEVOMEPROMAZINE
     Indication: AUTISM
     Dosage: 25 MG, DAILY, STYRKE (STRENGTH): 25 MG
     Route: 048
  2. MELATONIN [Concomitant]
     Active Substance: MELATONIN
     Indication: PRODUCT USED FOR UNKNOWN INDICATION
     Dosage: 2 MG, DAILY
     Route: 065
  3. SERTRALINE [Suspect]
     Active Substance: SERTRALINE HYDROCHLORIDE
     Indication: AUTISM
     Dosage: 50 MG, DAILY, STYRKE (STRENGTH): 50 MG
     Route: 048
  4. RISPERDAL [Suspect]
     Active Substance: RISPERIDONE
     Indication: AUTISM
     Dosage: DOSE: 1,5 + 1 TABLET DAILY, STRENGTH: 1 MG
     Route: 048

REACTIONS (14)
  - Pulseless electrical activity [Fatal]
  - Ventricular fibrillation [Unknown]
  - Torsade de pointes [Fatal]
  - Loss of consciousness [Unknown]
  - Respiratory arrest [Unknown]
  - Cerebral ischaemia [Unknown]
  - Syncope [Unknown]
  - Muscle spasms [Unknown]
  - Brain hypoxia [Fatal]
  - Eye movement disorder [Unknown]
  - Ventricular tachycardia [Unknown]
  - Cardiac arrest [Unknown]
  - Electrocardiogram QT prolonged [Unknown]
  - Arrhythmia [Fatal]

NARRATIVE: CASE EVENT DATE: 201510
